FAERS Safety Report 7823785-0 (Version None)
Quarter: 2011Q4

REPORT INFORMATION
  Report Type: 
  Country: None (occurrence: None)
  Receive Date: 20111019
  Receipt Date: 20111018
  Transmission Date: 20120403
  Serious: No
  Sender: FDA-Public Use
  Company Number: US-PFIZER INC-2011250545

PATIENT
  Sex: Male
  Weight: 99.773 kg

DRUGS (4)
  1. CHANTIX [Suspect]
     Indication: SMOKING CESSATION THERAPY
     Dosage: 0.5 MG, DAILY
     Route: 048
     Dates: start: 20111001, end: 20111001
  2. CHANTIX [Suspect]
     Dosage: UNK
     Route: 048
     Dates: start: 20111001
  3. CYMBALTA [Concomitant]
     Indication: ANXIETY
     Dosage: UNK
  4. LISINOPRIL [Concomitant]
     Indication: HYPERTENSION
     Dosage: 20 MG

REACTIONS (1)
  - EPISTAXIS [None]
